FAERS Safety Report 4389239-1 (Version None)
Quarter: 2004Q2

REPORT INFORMATION
  Report Type: 
  Country: None (occurrence: None)
  Receive Date: 20040630
  Receipt Date: 20040618
  Transmission Date: 20050107
  Serious: Yes (Life-Threatening, Hospitalization)
  Sender: FDA-Public Use
  Company Number: 2004220369JP

PATIENT
  Age: 75 Year
  Sex: Male
  Weight: 54 kg

DRUGS (8)
  1. ZYVOX [Suspect]
     Indication: PNEUMONIA STAPHYLOCOCCAL
     Dosage: 600 MG, BID, IV
     Route: 042
     Dates: start: 20031103, end: 20031114
  2. CILASTIN SODIUM W/IMIPENEM            (CILASTIN SODIUM,IMIPENEM) [Concomitant]
  3. NAFAMOSTAT MESILATE (NAFAMOSTAT MESILATE ) [Concomitant]
  4. INOVAN (DOPAMINE HYDROCHLORIDE) [Concomitant]
  5. ALBUMINAR [Concomitant]
  6. TAGAMET [Concomitant]
  7. INTRALIPOS [Concomitant]
  8. VENOGLOBULIN-IH [Concomitant]

REACTIONS (3)
  - CARDIO-RESPIRATORY ARREST [None]
  - MOUTH ULCERATION [None]
  - PLATELET COUNT DECREASED [None]
